FAERS Safety Report 10070789 (Version 1)
Quarter: 2014Q2

REPORT INFORMATION
  Report Type: Spontaneous
  Country: US (occurrence: US)
  Receive Date: 20140410
  Receipt Date: 20140410
  Transmission Date: 20141212
  Serious: No
  Sender: FDA-Public Use
  Company Number: US-TARO-2013P1018197

PATIENT
  Age: 58 Year
  Sex: Male
  Weight: 78.02 kg

DRUGS (1)
  1. ETODOLAC TABLETS 500 MG [Suspect]
     Indication: BACK INJURY
     Route: 048
     Dates: start: 20130424

REACTIONS (2)
  - Drug ineffective [Not Recovered/Not Resolved]
  - Incorrect product storage [Not Recovered/Not Resolved]
